FAERS Safety Report 13129143 (Version 3)
Quarter: 2017Q2

REPORT INFORMATION
  Report Type: Report from Study
  Country: US (occurrence: US)
  Receive Date: 20170119
  Receipt Date: 20170522
  Transmission Date: 20170830
  Serious: Yes (Hospitalization, Other)
  Sender: FDA-Public Use
  Company Number: US-AMGEN-USASL2017005131

PATIENT
  Age: 57 Year
  Sex: Female

DRUGS (4)
  1. METHOTREXATE. [Suspect]
     Active Substance: METHOTREXATE
     Indication: PRODUCT USED FOR UNKNOWN INDICATION
     Dosage: 2.5 MG,  5 PILLS ONCE A WEEK  ON TUESDAYS
     Route: 065
  2. CORTISONE [Concomitant]
     Active Substance: CORTISONE\HYDROCORTISONE
     Dosage: UNK
     Dates: start: 2016
  3. LEUCOVORIN CALCIUM. [Concomitant]
     Active Substance: LEUCOVORIN CALCIUM
     Indication: IMMUNE ENHANCEMENT THERAPY
     Dosage: 5 MG,  2 TABLETS ON WEDNESDAY
  4. ENBREL [Suspect]
     Active Substance: ETANERCEPT
     Indication: RHEUMATOID ARTHRITIS
     Dosage: 50 MG, 2 TIMES/WK (TUESDAYS AND FRIDAYS)
     Route: 065

REACTIONS (22)
  - Arthritis [Unknown]
  - Rheumatoid arthritis [Not Recovered/Not Resolved]
  - Procedural haemorrhage [Unknown]
  - Pneumonia [Unknown]
  - Abdominal pain upper [Not Recovered/Not Resolved]
  - Memory impairment [Unknown]
  - Back pain [Unknown]
  - Procedural pain [Unknown]
  - Mobility decreased [Unknown]
  - Incorrect product storage [Unknown]
  - Vaginal prolapse [Unknown]
  - Spinal fracture [Unknown]
  - Oxygen therapy [Unknown]
  - Arthralgia [Unknown]
  - Off label use [Unknown]
  - Hysterectomy [Unknown]
  - Spinal operation [Unknown]
  - Device dislocation [Unknown]
  - Laceration [Unknown]
  - Fall [Unknown]
  - Injection site pain [Unknown]
  - Intestinal prolapse [Not Recovered/Not Resolved]

NARRATIVE: CASE EVENT DATE: 2010
